FAERS Safety Report 23535760 (Version 3)
Quarter: 2024Q1

REPORT INFORMATION
  Report Type: Report from Study
  Country: AU (occurrence: AU)
  Receive Date: 20240218
  Receipt Date: 20240226
  Transmission Date: 20240410
  Serious: Yes (Life-Threatening, Hospitalization)
  Sender: FDA-Public Use
  Company Number: AU-JNJFOC-20240236194

PATIENT
  Age: 82 Year
  Sex: Male

DRUGS (3)
  1. DARZALEX [Suspect]
     Active Substance: DARATUMUMAB
     Indication: Plasma cell myeloma
     Route: 058
     Dates: start: 20231108, end: 20231222
  2. DEXAMETHASONE [Suspect]
     Active Substance: DEXAMETHASONE
     Indication: Plasma cell myeloma
     Route: 048
     Dates: start: 20231108, end: 20231222
  3. POMALIDOMIDE [Suspect]
     Active Substance: POMALIDOMIDE
     Indication: Plasma cell myeloma
     Route: 048
     Dates: start: 20231108, end: 20231222

REACTIONS (7)
  - Escherichia pyelonephritis [Recovering/Resolving]
  - Escherichia sepsis [Recovering/Resolving]
  - Pseudomonal sepsis [Recovering/Resolving]
  - Hypotension [Recovering/Resolving]
  - Speech disorder [Recovering/Resolving]
  - Hypertension [Recovering/Resolving]
  - Movement disorder [Recovered/Resolved]

NARRATIVE: CASE EVENT DATE: 20231223
